FAERS Safety Report 12311114 (Version 2)
Quarter: 2016Q2

REPORT INFORMATION
  Report Type: Spontaneous
  Country: JP (occurrence: JP)
  Receive Date: 20160427
  Receipt Date: 20160526
  Transmission Date: 20160815
  Serious: Yes (Hospitalization)
  Sender: FDA-Public Use
  Company Number: JP-DSJP-DSJ-2016-114813

PATIENT

DRUGS (2)
  1. OLMETEC TABLETS 20MG [Suspect]
     Active Substance: OLMESARTAN MEDOXOMIL
     Indication: PRODUCT USED FOR UNKNOWN INDICATION
     Dosage: 20 MG, QD
     Route: 048
  2. CALBLOCK [Suspect]
     Active Substance: AZELNIDIPINE
     Indication: PRODUCT USED FOR UNKNOWN INDICATION
     Dosage: UNK
     Route: 048

REACTIONS (4)
  - Pericardial effusion [Recovered/Resolved]
  - Oedema [Recovered/Resolved]
  - Blood creatinine increased [Recovered/Resolved]
  - Blood uric acid increased [Recovered/Resolved]
